FAERS Safety Report 5699653-X (Version None)
Quarter: 2008Q2

REPORT INFORMATION
  Report Type: 
  Country: None (occurrence: None)
  Receive Date: 20080410
  Receipt Date: 20080403
  Transmission Date: 20081010
  Serious: Yes (Life-Threatening, Hospitalization)
  Sender: FDA-Public Use
  Company Number: PHEH2008US02953

PATIENT
  Age: 4 Year
  Sex: Female
  Weight: 14 kg

DRUGS (10)
  1. SIMULECT [Suspect]
     Indication: RENAL TRANSPLANT
     Dosage: 10 MG, UNK
     Route: 042
     Dates: start: 20080312, end: 20080312
  2. SIMULECT [Suspect]
     Dosage: 10 MG, UNK
     Route: 042
     Dates: start: 20080315, end: 20080315
  3. SOLU-MEDROL [Concomitant]
     Dosage: 2 MG/KG/DOSE  BID
     Route: 042
  4. KEFZOL [Concomitant]
  5. PROGRAF [Concomitant]
  6. CELLCEPT [Concomitant]
  7. PEPCID [Concomitant]
  8. VERSED [Concomitant]
     Dates: start: 20080312
  9. FENTANYL [Concomitant]
     Dates: start: 20080312
  10. ANESTHETICS, GENERAL [Concomitant]
     Dates: start: 20080312, end: 20080312

REACTIONS (6)
  - AGITATION [None]
  - MECHANICAL VENTILATION [None]
  - OXYGEN SATURATION DECREASED [None]
  - PULMONARY OEDEMA [None]
  - RESPIRATORY DISTRESS [None]
  - RESPIRATORY FAILURE [None]
